FAERS Safety Report 8264796-3 (Version None)
Quarter: 2012Q2

REPORT INFORMATION
  Report Type: 
  Country: None (occurrence: None)
  Receive Date: 20120406
  Receipt Date: 20120330
  Transmission Date: 20120825
  Serious: Yes (Hospitalization, Other)
  Sender: FDA-Public Use
  Company Number: IE-JNJFOC-20111110377

PATIENT
  Sex: Female

DRUGS (5)
  1. CLOPIXOL [Concomitant]
     Indication: PRODUCT USED FOR UNKNOWN INDICATION
     Route: 030
  2. INVEGA [Suspect]
     Indication: SCHIZOAFFECTIVE DISORDER
     Route: 048
     Dates: start: 20111111, end: 20111118
  3. HALDOL [Suspect]
     Indication: SCHIZOAFFECTIVE DISORDER
     Route: 048
     Dates: start: 20111024, end: 20111204
  4. VALPROATE SODIUM [Concomitant]
     Indication: AFFECTIVE DISORDER
     Route: 065
  5. LORAZEPAM [Concomitant]
     Indication: PRODUCT USED FOR UNKNOWN INDICATION
     Route: 065

REACTIONS (3)
  - ANGINA PECTORIS [None]
  - BLOOD PROLACTIN INCREASED [None]
  - PSYCHOTIC DISORDER [None]
